FAERS Safety Report 5882116-6 (Version None)
Quarter: 2008Q3

REPORT INFORMATION
  Report Type: 
  Country: None (occurrence: None)
  Receive Date: 20080912
  Receipt Date: 20080821
  Transmission Date: 20090109
  Serious: No
  Sender: FDA-Public Use
  Company Number: US-ABBOTT-08P-163-0465602-00

PATIENT
  Sex: Female
  Weight: 68.1 kg

DRUGS (12)
  1. HUMIRA [Suspect]
     Indication: CROHN'S DISEASE
     Dates: start: 20080720, end: 20080720
  2. HUMIRA [Suspect]
     Route: 058
     Dates: start: 20080803, end: 20080803
  3. HUMIRA [Suspect]
     Route: 058
  4. TRANDOLAPRIL [Concomitant]
     Indication: HYPERTENSION
  5. SPIRONOLACTONE [Concomitant]
     Indication: FLUID RETENTION
  6. OMEPRAZOLE [Concomitant]
     Indication: GASTROOESOPHAGEAL REFLUX DISEASE
     Dosage: 20 MG DAILY
  7. TRAMADOL HCL [Concomitant]
     Indication: ARTHRALGIA
  8. ESTROGENS CONJUGATED [Concomitant]
     Indication: MENOPAUSE
     Dosage: 0.03 MG DAILY
  9. MODAFINIL [Concomitant]
     Indication: FATIGUE
  10. SIMVASTATIN [Concomitant]
     Indication: BLOOD CHOLESTEROL INCREASED
     Dosage: 80 MG DAILY
  11. MOMETASONE FUROATE [Concomitant]
     Indication: HYPERSENSITIVITY
  12. METHOTREXATE [Concomitant]
     Indication: DRUG USE FOR UNKNOWN INDICATION
     Dosage: 2.5 MG-3 PILLS WEEKLY

REACTIONS (5)
  - CHILLS [None]
  - FATIGUE [None]
  - HYPERHIDROSIS [None]
  - PYREXIA [None]
  - VOMITING [None]
